FAERS Safety Report 17001086 (Version 2)
Quarter: 2019Q4

REPORT INFORMATION
  Report Type: Report from Study
  Country: US (occurrence: US)
  Receive Date: 20191106
  Receipt Date: 20191120
  Transmission Date: 20200122
  Serious: Yes (Hospitalization)
  Sender: FDA-Public Use
  Company Number: US-ACTELION-A-NJ2019-186239

PATIENT
  Age: 51 Year
  Sex: Male

DRUGS (22)
  1. PREDNISONE. [Concomitant]
     Active Substance: PREDNISONE
  2. KCL [Concomitant]
     Active Substance: POTASSIUM CHLORIDE
  3. OXYCODONE [Concomitant]
     Active Substance: OXYCODONE
  4. LIPITOR [Concomitant]
     Active Substance: ATORVASTATIN CALCIUM
  5. BUSPAR [Concomitant]
     Active Substance: BUSPIRONE HYDROCHLORIDE
  6. TORSEMIDE. [Concomitant]
     Active Substance: TORSEMIDE
  7. PRILOSEC [Concomitant]
     Active Substance: OMEPRAZOLE MAGNESIUM
  8. MAGNESIUM OXIDE. [Concomitant]
     Active Substance: MAGNESIUM OXIDE
  9. DEMADEX [Concomitant]
     Active Substance: TORSEMIDE
  10. ULORIC [Concomitant]
     Active Substance: FEBUXOSTAT
  11. REVATIO [Concomitant]
     Active Substance: SILDENAFIL CITRATE
  12. VITAMIN D [Concomitant]
     Active Substance: VITAMIN D NOS
  13. ALBUTEROL. [Concomitant]
     Active Substance: ALBUTEROL
  14. ASA [Concomitant]
     Active Substance: ASPIRIN
  15. SENOKOT-S [Concomitant]
     Active Substance: DOCUSATE SODIUM\SENNOSIDES
  16. METOPROLOL. [Concomitant]
     Active Substance: METOPROLOL
  17. BACLOFEN. [Concomitant]
     Active Substance: BACLOFEN
  18. OPSUMIT [Suspect]
     Active Substance: MACITENTAN
     Indication: PULMONARY ARTERIAL HYPERTENSION
     Dosage: 10 MG, QD
     Route: 048
     Dates: start: 20190103
  19. SILDENAFIL. [Concomitant]
     Active Substance: SILDENAFIL
  20. SPIRONOLACTONE. [Concomitant]
     Active Substance: SPIRONOLACTONE
  21. ZAROXOLYN [Concomitant]
     Active Substance: METOLAZONE
  22. ZANTAC [Concomitant]
     Active Substance: RANITIDINE HYDROCHLORIDE

REACTIONS (12)
  - Hypoxia [Recovered/Resolved]
  - Fluid retention [Unknown]
  - Interstitial lung disease [Recovered/Resolved]
  - Productive cough [Unknown]
  - Pulmonary hypertension [Unknown]
  - Dyspnoea [Recovered/Resolved]
  - Arthralgia [Unknown]
  - Acute left ventricular failure [Recovered/Resolved]
  - Chills [Unknown]
  - Acute kidney injury [Recovered/Resolved]
  - Swelling [Recovered/Resolved]
  - Cough [Not Recovered/Not Resolved]

NARRATIVE: CASE EVENT DATE: 20190304
